FAERS Safety Report 7162732-4 (Version None)
Quarter: 2010Q4

REPORT INFORMATION
  Report Type: 
  Country: None (occurrence: None)
  Receive Date: 20101215
  Receipt Date: 20091216
  Transmission Date: 20110411
  Serious: Yes (Hospitalization)
  Sender: FDA-Public Use
  Company Number: JP-PFIZER INC-2009308229

PATIENT
  Age: 69 Year
  Sex: Female
  Weight: 48.7 kg

DRUGS (9)
  1. CISPLATIN [Suspect]
     Indication: METASTATIC GASTRIC CANCER
     Dosage: 84.6 MG, 1X/DAY EVERY 4 WEEKS
     Route: 042
     Dates: start: 20091119, end: 20091119
  2. SUNITINIB MALATE [Suspect]
     Indication: METASTATIC GASTRIC CANCER
     Dosage: 25 MG, 1X/DAY
     Route: 048
     Dates: start: 20091118, end: 20091201
  3. *TS-1 [Suspect]
     Indication: METASTATIC GASTRIC CANCER
     Dosage: 100 MG, 1X/DAY
     Route: 048
     Dates: start: 20091119, end: 20091206
  4. FERROUS CITRATE [Concomitant]
     Indication: ANAEMIA
     Dosage: 50 MG, UNK
     Route: 048
     Dates: start: 20091023
  5. PARIET [Concomitant]
     Indication: GASTRIC CANCER
     Dosage: 10 MG, UNK
     Route: 048
     Dates: start: 20091023
  6. PENTAZOCINE LACTATE [Concomitant]
     Indication: CENTRAL VENOUS CATHETERISATION
     Dosage: UNK
     Dates: start: 20091126, end: 20091126
  7. ATARAX [Concomitant]
     Indication: CENTRAL VENOUS CATHETERISATION
     Dosage: UNK
     Dates: start: 20091126, end: 20091126
  8. CEFAZOLIN SODIUM [Concomitant]
     Indication: CENTRAL VENOUS CATHETERISATION
     Dosage: UNK
     Dates: start: 20091126, end: 20091127
  9. CALONAL [Concomitant]
     Indication: TOOTHACHE
     Dosage: UNK
     Dates: start: 20091125, end: 20091125

REACTIONS (3)
  - ANAEMIA [None]
  - DISSEMINATED INTRAVASCULAR COAGULATION [None]
  - PLATELET COUNT DECREASED [None]
